FAERS Safety Report 9300329 (Version 2)
Quarter: 2013Q2

REPORT INFORMATION
  Report Type: Spontaneous
  Country: US (occurrence: US)
  Receive Date: 20130521
  Receipt Date: 20130605
  Transmission Date: 20140414
  Serious: No
  Sender: FDA-Public Use
  Company Number: US-TEVA-406076USA

PATIENT
  Age: 42 Year
  Sex: Female
  Weight: 61.29 kg

DRUGS (1)
  1. PLAN B ONE-STEP [Suspect]
     Indication: POST COITAL CONTRACEPTION
     Dosage: 1.5 MILLIGRAM DAILY;
     Route: 048
     Dates: start: 20130514, end: 20130514

REACTIONS (3)
  - Rash [Recovered/Resolved]
  - Capillary fragility [Recovered/Resolved]
  - Drug hypersensitivity [Recovered/Resolved]
